FAERS Safety Report 7901079-2 (Version None)
Quarter: 2011Q4

REPORT INFORMATION
  Report Type: 
  Country: None (occurrence: None)
  Receive Date: 20111108
  Receipt Date: 20111101
  Transmission Date: 20120403
  Serious: Yes (Death, Hospitalization, Other)
  Sender: FDA-Public Use
  Company Number: JP-ELI_LILLY_AND_COMPANY-JP201110006712

PATIENT
  Sex: Female
  Weight: 35.4 kg

DRUGS (6)
  1. GEMZAR [Suspect]
     Indication: MALIGNANT PERITONEAL NEOPLASM
     Dosage: 1100 MG, OTHER
     Route: 042
     Dates: start: 20110927
  2. MEXITIL [Concomitant]
     Indication: ABDOMINAL DISTENSION
     Dosage: 100 MG, TID
     Route: 048
     Dates: start: 20110826, end: 20111012
  3. LENDEM [Concomitant]
     Indication: INSOMNIA
     Dosage: 0.25 MG, QD
     Route: 048
     Dates: start: 20110726, end: 20111012
  4. CARBOPLATIN [Concomitant]
     Indication: MALIGNANT PERITONEAL NEOPLASM
     Dosage: 440 MG, OTHER
     Route: 042
     Dates: start: 20110927
  5. BETAMETHASONE [Concomitant]
     Indication: DECREASED APPETITE
     Dosage: 2 MG, BID
     Route: 048
     Dates: start: 20110826, end: 20111012
  6. FULCALIQ [Concomitant]
     Dosage: 1 DF, QD
     Route: 042
     Dates: start: 20110716, end: 20111012

REACTIONS (5)
  - NEUTROPHIL COUNT DECREASED [None]
  - SEPTIC SHOCK [None]
  - PLATELET COUNT DECREASED [None]
  - HAEMOGLOBIN DECREASED [None]
  - PNEUMONIA [None]
